FAERS Safety Report 8736730 (Version 3)
Quarter: 2013Q2

REPORT INFORMATION
  Report Type: Spontaneous
  Country: US (occurrence: US)
  Receive Date: 20120822
  Receipt Date: 20130419
  Transmission Date: 20140414
  Serious: No
  Sender: FDA-Public Use
  Company Number: US-ASTRAZENECA-2012SE57378

PATIENT
  Age: 57 Year
  Sex: Female
  Weight: 79.4 kg

DRUGS (12)
  1. SEROQUEL XR [Suspect]
     Indication: SLEEP DISORDER
     Route: 048
     Dates: start: 2008, end: 20130325
  2. SEROQUEL XR [Suspect]
     Indication: BIPOLAR DISORDER
     Route: 048
     Dates: start: 2008, end: 20130325
  3. SEROQUEL XR [Suspect]
     Indication: MANIA
     Route: 048
     Dates: start: 2008, end: 20130325
  4. SEROQUEL XR [Suspect]
     Indication: SLEEP DISORDER
     Route: 048
     Dates: start: 20130327
  5. SEROQUEL XR [Suspect]
     Indication: BIPOLAR DISORDER
     Route: 048
     Dates: start: 20130327
  6. SEROQUEL XR [Suspect]
     Indication: MANIA
     Route: 048
     Dates: start: 20130327
  7. LITHIUM [Suspect]
     Indication: BIPOLAR DISORDER
     Route: 065
     Dates: start: 1991
  8. KLONOPIN [Concomitant]
  9. CYMBALTA [Concomitant]
     Indication: DEPRESSION
  10. EXCEDRIN OTC [Concomitant]
     Indication: MIGRAINE
  11. CLONAZEPAM [Concomitant]
     Indication: BIPOLAR DISORDER
  12. CLONAZEPAM [Concomitant]
     Indication: ANXIETY

REACTIONS (14)
  - Nausea [Unknown]
  - Malaise [Unknown]
  - Adverse drug reaction [Unknown]
  - Headache [Unknown]
  - Panic attack [Unknown]
  - Diarrhoea [Unknown]
  - Insomnia [Unknown]
  - Thinking abnormal [Not Recovered/Not Resolved]
  - Restlessness [Unknown]
  - Vomiting [Unknown]
  - Palpitations [Unknown]
  - Therapeutic response unexpected [Unknown]
  - Drug dose omission [Unknown]
  - Off label use [Not Recovered/Not Resolved]
